FAERS Safety Report 4669540-4 (Version None)
Quarter: 2005Q2

REPORT INFORMATION
  Report Type: 
  Country: None (occurrence: None)
  Receive Date: 20050523
  Receipt Date: 20050202
  Transmission Date: 20051028
  Serious: Yes (Other)
  Sender: FDA-Public Use
  Company Number: PHEH2005US01599

PATIENT
  Sex: Female

DRUGS (2)
  1. AREDIA [Suspect]
     Indication: BREAST CANCER METASTATIC
     Dosage: 90 MG Q4WKS
     Dates: start: 20000101
  2. FASLODEX [Concomitant]
     Dosage: 250 MG/Q4WKS
     Dates: start: 20040302

REACTIONS (8)
  - BONE EROSION [None]
  - EDENTULOUS [None]
  - INFLAMMATION [None]
  - ORAL SOFT TISSUE DISORDER [None]
  - OSTEOMYELITIS [None]
  - OSTEONECROSIS [None]
  - PRIMARY SEQUESTRUM [None]
  - TOOTH EXTRACTION [None]
